FAERS Safety Report 8469538-4 (Version None)
Quarter: 2012Q2

REPORT INFORMATION
  Report Type: 
  Country: None (occurrence: None)
  Receive Date: 20120626
  Receipt Date: 20120611
  Transmission Date: 20120825
  Serious: Yes (Other)
  Sender: FDA-Public Use
  Company Number: FR-WATSON-2012-10122

PATIENT
  Sex: Male

DRUGS (2)
  1. TRELSTAR [Suspect]
     Indication: PROSTATE CANCER
     Dosage: 22.5 MG TOTAL
     Route: 030
     Dates: start: 20120417, end: 20120417
  2. ORMANDYL [Suspect]
     Indication: PROSTATE CANCER
     Dosage: UNK
     Route: 065
     Dates: start: 20120411, end: 20120425

REACTIONS (1)
  - ECZEMA [None]
